FAERS Safety Report 10075505 (Version 4)
Quarter: 2014Q2

REPORT INFORMATION
  Report Type: Spontaneous
  Country: RO (occurrence: RO)
  Receive Date: 20140414
  Receipt Date: 20140430
  Transmission Date: 20141212
  Serious: Yes (Other)
  Sender: FDA-Public Use
  Company Number: RO-BAYER-2014-051520

PATIENT
  Age: 29 Year
  Sex: Female

DRUGS (1)
  1. YASMIN [Suspect]
     Indication: HIRSUTISM
     Dosage: UNK
     Route: 048

REACTIONS (13)
  - Headache [Unknown]
  - Nausea [Unknown]
  - Dizziness [Unknown]
  - Vomiting [Unknown]
  - Fibrin D dimer increased [None]
  - Thrombophlebitis superficial [None]
  - Hypercoagulation [Unknown]
  - Intracranial pressure increased [Unknown]
  - Migraine [None]
  - Hyperpituitarism [None]
  - Hyperprolactinaemia [None]
  - Autoimmune thyroiditis [None]
  - Pain in extremity [Not Recovered/Not Resolved]
